FAERS Safety Report 5299200-0 (Version None)
Quarter: 2007Q2

REPORT INFORMATION
  Report Type: 
  Country: None (occurrence: None)
  Receive Date: 20070410
  Receipt Date: 20070330
  Transmission Date: 20071010
  Serious: Yes (Hospitalization)
  Sender: FDA-Public Use
  Company Number: 239205

PATIENT
  Age: 73 Year
  Sex: Male

DRUGS (8)
  1. AVASTIN [Suspect]
     Indication: NEOPLASM MALIGNANT
     Dosage: 370 MG, QOW, INTRAVENOUS
     Route: 042
     Dates: start: 20070131
  2. DOCETAXEL(DOCETAXEL) [Suspect]
     Indication: NEOPLASM MALIGNANT
     Dosage: 38.2 MG, QOW, INTRAVENOUS
     Route: 042
     Dates: start: 20070131
  3. ZOCOR [Concomitant]
  4. RADIATION THERAPY (RADIATION THERAPY) [Concomitant]
  5. OXYCODONE HCL [Concomitant]
  6. ZOFRAN [Concomitant]
  7. ALLEGRA [Concomitant]
  8. MAGNESIUM SULFATE [Concomitant]

REACTIONS (3)
  - COLLAPSE OF LUNG [None]
  - DEHYDRATION [None]
  - PNEUMOTHORAX [None]
